FAERS Safety Report 13078103 (Version 3)
Quarter: 2017Q4

REPORT INFORMATION
  Report Type: Spontaneous
  Country: KR (occurrence: KR)
  Receive Date: 20170102
  Receipt Date: 20171201
  Transmission Date: 20180320
  Serious: Yes (Life-Threatening)
  Sender: FDA-Public Use
  Company Number: KR-SUN PHARMACEUTICAL INDUSTRIES LTD-2016RR-130410

PATIENT
  Age: 57 Year
  Sex: Female

DRUGS (10)
  1. CIDOFOVIR. [Suspect]
     Active Substance: CIDOFOVIR
     Indication: BK VIRUS INFECTION
     Dosage: UNK
     Route: 042
  2. IMMUNOGLOBULINS [Suspect]
     Active Substance: IMMUNE GLOBULIN NOS
     Indication: ENCEPHALITIS VIRAL
     Dosage: UNK
     Route: 042
  3. CIPROFLOXACIN. [Suspect]
     Active Substance: CIPROFLOXACIN
     Indication: BK VIRUS INFECTION
     Dosage: UNK
     Route: 065
  4. CIDOFOVIR. [Suspect]
     Active Substance: CIDOFOVIR
     Dosage: MAINTENANCE DOSE
     Route: 042
  5. CIDOFOVIR. [Suspect]
     Active Substance: CIDOFOVIR
     Indication: ENCEPHALITIS VIRAL
     Dosage: UNK
     Route: 042
  6. IMMUNOGLOBULINS [Suspect]
     Active Substance: IMMUNE GLOBULIN NOS
     Indication: BK VIRUS INFECTION
     Dosage: UNK
     Route: 042
  7. CIPROFLOXACIN. [Suspect]
     Active Substance: CIPROFLOXACIN
     Indication: ENCEPHALITIS VIRAL
     Dosage: UNK
     Route: 065
  8. CIDOFOVIR. [Suspect]
     Active Substance: CIDOFOVIR
     Dosage: LOADING DOSE
     Route: 042
  9. GANCICLOVIR. [Concomitant]
     Active Substance: GANCICLOVIR
     Indication: ENCEPHALITIS VIRAL
     Dosage: UNK
     Route: 042
  10. METHYLPREDNISOLONE. [Concomitant]
     Active Substance: METHYLPREDNISOLONE
     Indication: THROMBOTIC MICROANGIOPATHY
     Dosage: UNK
     Route: 065

REACTIONS (1)
  - Drug ineffective [Unknown]
